FAERS Safety Report 7014364-6 (Version None)
Quarter: 2010Q3

REPORT INFORMATION
  Report Type: 
  Country: None (occurrence: None)
  Receive Date: 20100922
  Receipt Date: 20100907
  Transmission Date: 20110219
  Serious: Yes (Congenital Anomaly)
  Sender: FDA-Public Use
  Company Number: 2010S1000337

PATIENT

DRUGS (2)
  1. VENLAFAXINE HCL EXTENDED-RELEASE [Suspect]
     Dates: end: 20100101
  2. TRAZODONE HCL [Suspect]
     Dates: end: 20100101

REACTIONS (6)
  - COARCTATION OF THE AORTA [None]
  - CONGENITAL ABSENCE OF BILE DUCTS [None]
  - CONGENITAL ANOMALY [None]
  - INTESTINAL ATRESIA [None]
  - MATERNAL DRUGS AFFECTING FOETUS [None]
  - PREMATURE BABY [None]
